FAERS Safety Report 9697434 (Version 1)
Quarter: 2013Q4

REPORT INFORMATION
  Report Type: Spontaneous
  Country: US (occurrence: None)
  Receive Date: 20131119
  Receipt Date: 20131119
  Transmission Date: 20140711
  Serious: Yes (Disabling, Other)
  Sender: FDA-Public Use
  Company Number: None

PATIENT
  Age: 32 Year
  Sex: Female
  Weight: 58.97 kg

DRUGS (1)
  1. SUMATRIPTAN SUCCINATE [Suspect]
     Indication: MIGRAINE
     Dosage: UP TO 4 PILLS IN 24 HOURS AS NEEDED TAKEN BY MOUTH
     Route: 048
     Dates: start: 20131117, end: 20131118

REACTIONS (4)
  - Drug ineffective [None]
  - Urticaria [None]
  - Myalgia [None]
  - Product quality issue [None]
